FAERS Safety Report 5068598-0 (Version None)
Quarter: 2006Q3

REPORT INFORMATION
  Report Type: 
  Country: None (occurrence: None)
  Receive Date: 20060802
  Receipt Date: 20051221
  Transmission Date: 20061208
  Serious: No
  Sender: FDA-Public Use
  Company Number: US-BRISTOL-MYERS SQUIBB COMPANY-13224936

PATIENT
  Age: 74 Year
  Sex: Male
  Weight: 83 kg

DRUGS (8)
  1. COUMADIN [Suspect]
     Indication: ATRIAL FIBRILLATION
     Dosage: DURATION: SEVERAL YEARS, DOSE SINCE 2/04: 5MG, 1/2 TAB/D ON SUN + THUR, 5MG, 1 TAB/D THE OTHER DAYS
  2. ATENOLOL [Concomitant]
  3. DIGOXIN [Concomitant]
  4. DILTIAZEM HCL [Concomitant]
  5. GLYBURIDE [Concomitant]
  6. LISINOPRIL [Concomitant]
  7. METFORMIN HYDROCHLORIDE [Concomitant]
  8. SIMVASTATIN [Concomitant]

REACTIONS (2)
  - EPISTAXIS [None]
  - INTERNATIONAL NORMALISED RATIO DECREASED [None]
